FAERS Safety Report 15979318 (Version 2)
Quarter: 2019Q1

REPORT INFORMATION
  Report Type: Spontaneous
  Country: EG (occurrence: EG)
  Receive Date: 20190219
  Receipt Date: 20190226
  Transmission Date: 20190418
  Serious: Yes (Hospitalization, Disabling, Other)
  Sender: FDA-Public Use
  Company Number: EG-NOVOPROD-647107

PATIENT
  Age: 70 Year
  Sex: Male
  Weight: 110 kg

DRUGS (6)
  1. ASPOCID [Concomitant]
     Active Substance: ASPIRIN
     Indication: HAEMOPHILIA
     Dosage: 2 ORAL TABLETS AFTER LUNCH
     Dates: start: 201805
  2. MIXTARD 30 HM PENFILL [Suspect]
     Active Substance: INSULIN HUMAN
     Indication: DIABETES MELLITUS
     Dosage: 40 IU, QD (20IU ,10IU AND 10 IU PER EACH MEAL)
     Route: 058
     Dates: start: 201207
  3. MIXTARD 30 HM PENFILL [Suspect]
     Active Substance: INSULIN HUMAN
     Dosage: 20 IU AND 10 IU BEFOR BREAKFAST AND LUNCH
     Route: 058
  4. ISOPTIN [Concomitant]
     Active Substance: VERAPAMIL HYDROCHLORIDE
     Indication: HYPERTENSION
     Dosage: 1/2 ORAL TABLET AT NIGHT
     Dates: start: 2015
  5. MIXTARD 30 HM PENFILL [Suspect]
     Active Substance: INSULIN HUMAN
     Dosage: 20 IU, QD (BEFORE BREAKFAST)
     Route: 058
     Dates: start: 201212
  6. KANSARTAN [Concomitant]
     Indication: HYPERTENSION
     Dosage: 1 ORAL TABLET AT MORNING
     Dates: start: 2015

REACTIONS (3)
  - Artificial blood vessel occlusion [Not Recovered/Not Resolved]
  - Peripheral artery occlusion [Not Recovered/Not Resolved]
  - Gangrene [Not Recovered/Not Resolved]

NARRATIVE: CASE EVENT DATE: 20180528
